FAERS Safety Report 9196591 (Version 2)
Quarter: 2013Q2

REPORT INFORMATION
  Report Type: Spontaneous
  Country: DE (occurrence: DE)
  Receive Date: 20130328
  Receipt Date: 20130529
  Transmission Date: 20140414
  Serious: Yes (Hospitalization)
  Sender: FDA-Public Use
  Company Number: DE-AMGEN-DEUSP2013019376

PATIENT
  Age: 71 Year
  Sex: Female

DRUGS (6)
  1. PROLIA [Suspect]
     Indication: OSTEOPOROSIS
     Dosage: 60 MG, UNK
     Route: 058
     Dates: start: 20130116
  2. BONDIOL [Concomitant]
  3. CALCILAC [Concomitant]
  4. NEPHROTRANS [Concomitant]
  5. FURANTHRIL                         /00032601/ [Concomitant]
  6. BISOPROLOL [Concomitant]

REACTIONS (8)
  - Malaise [Unknown]
  - Asthenia [Unknown]
  - Dyspnoea exertional [Unknown]
  - Cyanosis [Unknown]
  - General physical health deterioration [Unknown]
  - Supraventricular extrasystoles [Unknown]
  - Ventricular extrasystoles [Unknown]
  - Hypocalcaemia [Recovering/Resolving]
